FAERS Safety Report 8029700-1 (Version None)
Quarter: 2012Q1

REPORT INFORMATION
  Report Type: 
  Country: None (occurrence: None)
  Receive Date: 20120109
  Receipt Date: 20120105
  Transmission Date: 20120608
  Serious: Yes (Life-Threatening, Hospitalization, Other)
  Sender: FDA-Public Use
  Company Number: GB-PFIZER INC-2012004112

PATIENT
  Age: 48 Year
  Sex: Male
  Weight: 108 kg

DRUGS (7)
  1. RAMIPRIL [Concomitant]
     Dosage: 10 MG, 1X/DAY
     Route: 048
     Dates: start: 20080101
  2. ATORVASTATIN CALCIUM [Suspect]
     Indication: HYPERCHOLESTEROLAEMIA
     Dosage: 40 MG, UNK
     Route: 048
     Dates: start: 20030101, end: 20111101
  3. BEZAFIBRATE [Concomitant]
     Dosage: 400 MG, 1X/DAY
     Route: 048
     Dates: start: 20030101
  4. CITALOPRAM [Concomitant]
     Dosage: 40 MG, 1X/DAY
     Route: 048
     Dates: start: 20100101
  5. ATORVASTATIN CALCIUM [Suspect]
     Indication: PROPHYLAXIS
  6. PIOGLITAZONE [Concomitant]
     Dosage: 15 MG, 2X/DAY
     Route: 048
     Dates: start: 20080101
  7. METFORMIN [Concomitant]
     Dosage: 850 MG, 2X/DAY
     Route: 048
     Dates: start: 20080101

REACTIONS (1)
  - PANCREATITIS ACUTE [None]
